FAERS Safety Report 5810893-9 (Version None)
Quarter: 2008Q3

REPORT INFORMATION
  Report Type: 
  Country: None (occurrence: None)
  Receive Date: 20080716
  Receipt Date: 20080703
  Transmission Date: 20090109
  Serious: Yes (Other)
  Sender: FDA-Public Use
  Company Number: PHHY2008JP11056

PATIENT
  Sex: Male

DRUGS (4)
  1. DIOVAN [Suspect]
     Indication: HYPERTENSION
     Dosage: 80 MG, QD
     Route: 048
  2. DIOVAN [Suspect]
     Dosage: 160 MG, QD
     Route: 048
  3. DIOVAN [Suspect]
     Dosage: 80 MG, QD
     Route: 048
  4. LIPITOR [Concomitant]
     Dosage: 5 MG
     Route: 048

REACTIONS (3)
  - HYPOTENSION [None]
  - INTERMITTENT CLAUDICATION [None]
  - RAYNAUD'S PHENOMENON [None]
